FAERS Safety Report 6064772-5 (Version None)
Quarter: 2009Q1

REPORT INFORMATION
  Report Type: 
  Country: None (occurrence: None)
  Receive Date: 20090204
  Receipt Date: 20081120
  Transmission Date: 20090719
  Serious: No
  Sender: FDA-Public Use
  Company Number: A0757446A

PATIENT
  Age: 50 Year
  Sex: Female

DRUGS (2)
  1. ARIXTRA [Suspect]
     Indication: PULMONARY EMBOLISM
     Dosage: 1INJ PER DAY
     Route: 058
     Dates: start: 20080901
  2. NO CONCURRENT MEDICATION [Concomitant]

REACTIONS (3)
  - ALOPECIA [None]
  - HEADACHE [None]
  - SKIN ODOUR ABNORMAL [None]
